FAERS Safety Report 8016056-3 (Version None)
Quarter: 2011Q4

REPORT INFORMATION
  Report Type: 
  Country: None (occurrence: None)
  Receive Date: 20111223
  Receipt Date: 20111206
  Transmission Date: 20120403
  Serious: Yes (Hospitalization)
  Sender: FDA-Public Use
  Company Number: DSJ-2011-26203

PATIENT
  Age: 64 Year
  Sex: Male

DRUGS (3)
  1. OMEPRAZOLE [Concomitant]
  2. BENICAR [Suspect]
     Indication: HYPERTENSION
     Dosage: 20 MG (20 MG, 1 IN 1 D), PER ORAL
     Route: 048
     Dates: start: 20100101, end: 20111101
  3. SULFASALAZINE [Concomitant]

REACTIONS (3)
  - DRUG INEFFECTIVE [None]
  - MALAISE [None]
  - LITHOTRIPSY [None]
